FAERS Safety Report 9819284 (Version 5)
Quarter: 2017Q2

REPORT INFORMATION
  Report Type: Spontaneous
  Country: US (occurrence: US)
  Receive Date: 20140115
  Receipt Date: 20170413
  Transmission Date: 20170830
  Serious: Yes (Other)
  Sender: FDA-Public Use
  Company Number: US-BAYER-2013-145678

PATIENT
  Age: 24 Year
  Sex: Female

DRUGS (1)
  1. MIRENA [Suspect]
     Active Substance: LEVONORGESTREL
     Indication: CONTRACEPTION
     Dosage: 20 MCG/24HR, CONT
     Route: 015

REACTIONS (34)
  - Coital bleeding [Unknown]
  - Migraine [Unknown]
  - Malaise [None]
  - Premenstrual syndrome [Unknown]
  - Amenorrhoea [Recovered/Resolved]
  - Dizziness [Unknown]
  - Presyncope [Unknown]
  - Insomnia [Unknown]
  - Pain [Unknown]
  - Dysmenorrhoea [Unknown]
  - Feeling abnormal [Unknown]
  - Adnexa uteri pain [Unknown]
  - Procedural pain [Unknown]
  - Adrenal disorder [Unknown]
  - Abdominal distension [Unknown]
  - Back pain [Unknown]
  - Pelvic pain [Unknown]
  - Decreased appetite [Unknown]
  - Weight decreased [Unknown]
  - Vulvovaginal rash [Unknown]
  - Abdominal pain lower [Unknown]
  - Photophobia [Unknown]
  - Urticaria [Unknown]
  - Oligomenorrhoea [Unknown]
  - Endometriosis [Unknown]
  - Fallopian tube spasm [Unknown]
  - Somnolence [Unknown]
  - Genital haemorrhage [Unknown]
  - Nephrolithiasis [Unknown]
  - Menorrhagia [Unknown]
  - Headache [Unknown]
  - Hyperacusis [Unknown]
  - Nausea [Unknown]
  - Procedural pain [Unknown]

NARRATIVE: CASE EVENT DATE: 20131110
